FAERS Safety Report 9963738 (Version 1)
Quarter: 2014Q1

REPORT INFORMATION
  Report Type: Report from Study
  Country: US (occurrence: US)
  Receive Date: 20140305
  Receipt Date: 20140305
  Transmission Date: 20141002
  Serious: No
  Sender: FDA-Public Use
  Company Number: US-ABBVIE-13P-163-1119064-00

PATIENT
  Sex: Male
  Weight: 86.26 kg

DRUGS (20)
  1. HUMIRA [Suspect]
     Indication: RHEUMATOID ARTHRITIS
     Route: 058
     Dates: start: 2003
  2. PAXIL CR [Concomitant]
     Indication: DEPRESSION
  3. PREDNISONE [Concomitant]
     Indication: RHEUMATOID ARTHRITIS
  4. TOPROL [Concomitant]
     Indication: HYPERTENSION
  5. SULFSALAZINE [Concomitant]
     Indication: RHEUMATOID ARTHRITIS
  6. IMDUR [Concomitant]
     Indication: BLOOD CHOLESTEROL INCREASED
  7. BENTYL [Concomitant]
     Indication: IRRITABLE BOWEL SYNDROME
  8. WELCHOL [Concomitant]
     Indication: BLOOD CHOLESTEROL INCREASED
  9. FOLIC ACID [Concomitant]
     Indication: RHEUMATOID ARTHRITIS
  10. LISINOPRIL [Concomitant]
     Indication: HYPERTENSION
  11. DEXILANT [Concomitant]
     Indication: GASTROOESOPHAGEAL REFLUX DISEASE
  12. ASPIRIN [Concomitant]
     Indication: PRODUCT USED FOR UNKNOWN INDICATION
  13. CRESTOR [Concomitant]
     Indication: BLOOD CHOLESTEROL INCREASED
  14. TRICOR [Concomitant]
     Indication: BLOOD CHOLESTEROL INCREASED
  15. RANITIDINE [Concomitant]
     Indication: GASTROOESOPHAGEAL REFLUX DISEASE
  16. MELATONIN [Concomitant]
     Indication: INSOMNIA
  17. NITRO STAT [Concomitant]
     Indication: PRODUCT USED FOR UNKNOWN INDICATION
  18. OXYCODONE [Concomitant]
     Indication: RHEUMATOID ARTHRITIS
  19. HYDROCODONE [Concomitant]
     Indication: RHEUMATOID ARTHRITIS
  20. CALTRATE [Concomitant]
     Indication: VITAMIN SUPPLEMENTATION

REACTIONS (1)
  - Injection site pain [Not Recovered/Not Resolved]
